FAERS Safety Report 15198022 (Version 1)
Quarter: 2018Q3

REPORT INFORMATION
  Report Type: Spontaneous
  Country: US (occurrence: US)
  Receive Date: 20180725
  Receipt Date: 20180725
  Transmission Date: 20181010
  Serious: No
  Sender: FDA-Public Use
  Company Number: US-ABBVIE-17P-163-2143252-00

PATIENT
  Sex: Female

DRUGS (6)
  1. SYNTHROID [Suspect]
     Active Substance: LEVOTHYROXINE SODIUM
     Indication: HYPOTHYROIDISM
     Route: 048
     Dates: start: 201501, end: 2016
  2. SYNTHROID [Suspect]
     Active Substance: LEVOTHYROXINE SODIUM
     Dosage: 1 TABLET 75MCG DAILY FOR 5 DAYS AND ONE TABLET OF 50 MCG THE REMAINING TWO DAYS.
     Route: 048
     Dates: start: 201701, end: 201710
  3. SYNTHROID [Suspect]
     Active Substance: LEVOTHYROXINE SODIUM
     Dosage: 1 TABLET 75MCG DAILY FOR 5 DAYS AND ONE TABLET OF 50 MCG THE REMAINING TWO DAYS.
     Route: 048
     Dates: start: 201701, end: 201710
  4. SYNTHROID [Suspect]
     Active Substance: LEVOTHYROXINE SODIUM
     Indication: HYPOTHYROIDISM
     Dosage: 1 TABLET 75MCG DAILY FOR 6 DAYS AND ONE TABLET OF 50 MCG THE REMAINING DAY .
     Route: 048
     Dates: start: 2016, end: 201701
  5. SYNTHROID [Suspect]
     Active Substance: LEVOTHYROXINE SODIUM
     Dosage: 1 TABLET 75MCG DAILY FOR 6 DAYS AND ONE TABLET OF 50 MCG THE REMAINING DAY .
     Route: 048
     Dates: start: 2016, end: 201701
  6. SYNTHROID [Suspect]
     Active Substance: LEVOTHYROXINE SODIUM
     Route: 048
     Dates: start: 201710

REACTIONS (5)
  - Throat irritation [Recovered/Resolved]
  - Pruritus generalised [Recovered/Resolved]
  - Drug hypersensitivity [Not Recovered/Not Resolved]
  - Blood thyroid stimulating hormone decreased [Recovering/Resolving]
  - Rhinorrhoea [Recovered/Resolved]

NARRATIVE: CASE EVENT DATE: 2016
